FAERS Safety Report 9983235 (Version 1)
Quarter: 2014Q1

REPORT INFORMATION
  Report Type: Report from Study
  Country: US (occurrence: US)
  Receive Date: 20140307
  Receipt Date: 20140307
  Transmission Date: 20141002
  Serious: No
  Sender: FDA-Public Use
  Company Number: US-ABBVIE-13P-163-1177342-00

PATIENT
  Age: 36 Year
  Sex: Female

DRUGS (3)
  1. HUMIRA [Suspect]
     Indication: CROHN^S DISEASE
     Dosage: LOADING DOSE
     Dates: start: 20131203
  2. BUSPIRONE [Concomitant]
     Indication: ANXIETY
     Dosage: 2-3 TIMES DAILY
  3. PROZAC [Concomitant]
     Indication: DEPRESSION

REACTIONS (1)
  - Injection site pain [Recovered/Resolved]
